FAERS Safety Report 5466018-5 (Version None)
Quarter: 2007Q3

REPORT INFORMATION
  Report Type: 
  Country: None (occurrence: None)
  Receive Date: 20070924
  Receipt Date: 20070920
  Transmission Date: 20080115
  Serious: Yes (Other)
  Sender: FDA-Public Use
  Company Number: DK-BOEHRINGER INGELHEIM PHARMACEUTICALS, INC.-2007-SW-00346DB

PATIENT
  Sex: Female

DRUGS (2)
  1. PERSANTIN [Suspect]
     Indication: ESSENTIAL THROMBOCYTHAEMIA
     Route: 048
     Dates: start: 20050630
  2. CLOPIDOGREL [Concomitant]
     Route: 048
     Dates: start: 20050101

REACTIONS (1)
  - PERIPHERAL VASCULAR DISORDER [None]
